FAERS Safety Report 12668394 (Version 1)
Quarter: 2016Q3

REPORT INFORMATION
  Report Type: Spontaneous
  Country: FR (occurrence: FR)
  Receive Date: 20160819
  Receipt Date: 20160819
  Transmission Date: 20161109
  Serious: Yes (Hospitalization)
  Sender: FDA-Public Use
  Company Number: FR-WARNER CHILCOTT, LLC-1056542

PATIENT
  Age: 88 Year
  Sex: Female

DRUGS (11)
  1. IRBESARTAN AND HYDROCHLOROTHIAZIDE [Suspect]
     Active Substance: HYDROCHLOROTHIAZIDE\IRBESARTAN
     Route: 048
  2. RILMENIDINE [Concomitant]
     Active Substance: RILMENIDINE
  3. KARDEGIC, ACETYLSALICYLATE LYSINE [Concomitant]
  4. AMIODARONE HCL [Concomitant]
     Active Substance: AMIODARONE HYDROCHLORIDE
  5. LEVOTHYROXINE SODIUM. [Concomitant]
     Active Substance: LEVOTHYROXINE SODIUM
  6. POTASSIUM CHLORIDE. [Concomitant]
     Active Substance: POTASSIUM CHLORIDE
     Route: 065
  7. MIRTAZAPINE. [Concomitant]
     Active Substance: MIRTAZAPINE
  8. UVEDOSE, COLECALCIFEROL [Concomitant]
  9. ACTONEL [Suspect]
     Active Substance: RISEDRONATE SODIUM
     Route: 048
  10. FUROSEMIDE. [Suspect]
     Active Substance: FUROSEMIDE
     Route: 048
  11. FENOFIBRATE. [Suspect]
     Active Substance: FENOFIBRATE
     Route: 048

REACTIONS (1)
  - Acute kidney injury [Recovered/Resolved]
